FAERS Safety Report 10385009 (Version 1)
Quarter: 2014Q3

REPORT INFORMATION
  Report Type: Spontaneous
  Country: JP (occurrence: JP)
  Receive Date: 20140814
  Receipt Date: 20140814
  Transmission Date: 20150326
  Serious: Yes (Death, Other)
  Sender: FDA-Public Use
  Company Number: PHHY2010JP096235

PATIENT
  Age: 65 Year
  Sex: Female

DRUGS (6)
  1. GLIVEC [Suspect]
     Active Substance: IMATINIB MESYLATE
     Dosage: 600 MG, UNK
  2. ONCOVIN INJ.LSG. [Concomitant]
     Dates: start: 201002
  3. DEXAMETHASONE. [Concomitant]
     Active Substance: DEXAMETHASONE
     Dates: start: 201002
  4. GLIVEC [Suspect]
     Active Substance: IMATINIB MESYLATE
     Indication: CHRONIC MYELOID LEUKAEMIA
     Dates: start: 20020601
  5. GLIVEC [Suspect]
     Active Substance: IMATINIB MESYLATE
     Dosage: UNK
     Dates: end: 201006
  6. SPRYCEL [Suspect]
     Active Substance: DASATINIB

REACTIONS (6)
  - Blast crisis in myelogenous leukaemia [Unknown]
  - Performance status decreased [Unknown]
  - Anal infection [Fatal]
  - Bone marrow failure [Fatal]
  - White blood cell count increased [Unknown]
  - Blast cell count increased [Unknown]

NARRATIVE: CASE EVENT DATE: 201002
